FAERS Safety Report 9083915 (Version 1)
Quarter: 2013Q1

REPORT INFORMATION
  Report Type: Report from Study
  Country: US (occurrence: US)
  Receive Date: 20130130
  Receipt Date: 20130130
  Transmission Date: 20140127
  Serious: No
  Sender: FDA-Public Use
  Company Number: US-ABBOTT-12P-163-0984195-00

PATIENT
  Age: 58 Year
  Sex: Female

DRUGS (13)
  1. HUMIRA [Suspect]
     Indication: BEHCET^S SYNDROME
  2. PREDNISONE [Concomitant]
     Indication: BEHCET^S SYNDROME
  3. COUMADIN [Concomitant]
     Indication: THROMBOSIS
     Dates: start: 2002
  4. COUMADIN [Concomitant]
     Indication: CEREBROVASCULAR ACCIDENT
  5. PROTONIX [Concomitant]
     Indication: GASTROOESOPHAGEAL REFLUX DISEASE
  6. ALBUTEROL [Concomitant]
     Indication: ASTHMA
  7. CARDIZEM CD [Concomitant]
     Indication: PRODUCT USED FOR UNKNOWN INDICATION
  8. METOPROLOL [Concomitant]
     Indication: HYPERTENSION
  9. OXYCODONE [Concomitant]
     Indication: OSTEOARTHRITIS
  10. OXYCODONE [Concomitant]
     Indication: FIBROMYALGIA
  11. LOTEMAX [Concomitant]
     Indication: EYE DISORDER
  12. VITAMIN D3 [Concomitant]
     Indication: PRODUCT USED FOR UNKNOWN INDICATION
  13. ASA [Concomitant]
     Indication: CEREBROVASCULAR ACCIDENT PROPHYLAXIS

REACTIONS (4)
  - Device malfunction [Not Recovered/Not Resolved]
  - Incorrect route of drug administration [Not Recovered/Not Resolved]
  - Rash [Recovered/Resolved]
  - Incorrect dose administered [Recovered/Resolved]
